FAERS Safety Report 6087492-X (Version None)
Quarter: 2009Q1

REPORT INFORMATION
  Report Type: 
  Country: None (occurrence: None)
  Receive Date: 20090223
  Receipt Date: 20090210
  Transmission Date: 20090719
  Serious: Yes (Hospitalization, Other)
  Sender: FDA-Public Use
  Company Number: SE-ELI_LILLY_AND_COMPANY-SE200902002355

PATIENT
  Sex: Female

DRUGS (2)
  1. CYMBALTA [Suspect]
     Indication: DEPRESSION
     Dosage: 30 MG, UNKNOWN
     Route: 048
     Dates: start: 20081113, end: 20081121
  2. ZYPREXA [Concomitant]

REACTIONS (3)
  - BLADDER INJURY [None]
  - PSYCHOTIC BEHAVIOUR [None]
  - URINARY RETENTION [None]
